FAERS Safety Report 7109879-6 (Version None)
Quarter: 2010Q4

REPORT INFORMATION
  Report Type: 
  Country: None (occurrence: None)
  Receive Date: 20101118
  Receipt Date: 20101112
  Transmission Date: 20110411
  Serious: Yes (Death, Other)
  Sender: FDA-Public Use
  Company Number: US-CELGENEUS-163-21880-10111823

PATIENT
  Age: 80 Year
  Sex: Female

DRUGS (4)
  1. REVLIMID [Suspect]
     Route: 048
     Dates: start: 20090501, end: 20090601
  2. OMEPRAZOLE [Concomitant]
     Route: 065
  3. ATENOLOL [Concomitant]
     Route: 065
  4. VICODIN [Concomitant]
     Route: 065

REACTIONS (6)
  - DEATH [None]
  - HEADACHE [None]
  - NEUTROPHIL COUNT DECREASED [None]
  - PLATELET COUNT DECREASED [None]
  - RASH [None]
  - STOMATITIS [None]
